FAERS Safety Report 5382642-2 (Version None)
Quarter: 2007Q3

REPORT INFORMATION
  Report Type: 
  Country: None (occurrence: None)
  Receive Date: 20070710
  Receipt Date: 20070629
  Transmission Date: 20080115
  Serious: Yes (Other)
  Sender: FDA-Public Use
  Company Number: SE-JNJFOC-20070605101

PATIENT

DRUGS (2)
  1. DURAGESIC-100 [Suspect]
     Indication: DRUG USE FOR UNKNOWN INDICATION
     Dosage: 25UG/24H
     Route: 062
  2. ANALGESIC MEDICATION [Concomitant]

REACTIONS (2)
  - DRUG PRESCRIBING ERROR [None]
  - RESPIRATORY FAILURE [None]
